FAERS Safety Report 6596459-4 (Version None)
Quarter: 2010Q1

REPORT INFORMATION
  Report Type: 
  Country: None (occurrence: None)
  Receive Date: 20100216
  Receipt Date: 20100208
  Transmission Date: 20100710
  Serious: Yes (Death, Hospitalization)
  Sender: FDA-Public Use
  Company Number: 2009AC000383

PATIENT
  Age: 57 Year
  Sex: Female

DRUGS (37)
  1. DIGOXIN [Suspect]
     Indication: ATRIAL FIBRILLATION
     Dosage: 0.125 MG; QD; PO
     Route: 048
  2. DIGOXIN [Suspect]
     Dosage: .25 MG; QD;
     Dates: start: 20060323, end: 20060822
  3. DIGOXIN [Suspect]
     Dosage: 125 MCG; QD; PO
     Route: 048
     Dates: start: 20080129, end: 20080330
  4. ASCORBIC ACID [Concomitant]
  5. VITAMIN B-12 [Concomitant]
  6. CARDIZEM [Concomitant]
  7. REVATIO [Concomitant]
  8. TIKOSYN [Concomitant]
  9. BENICAR [Concomitant]
  10. TAPERING [Concomitant]
  11. MULTI-VITAMIN [Concomitant]
  12. FOSAMAX [Concomitant]
  13. LASIX [Concomitant]
  14. ADVAIR DISKUS 100/50 [Concomitant]
  15. ACIPHEX [Concomitant]
  16. XOPENEX [Concomitant]
  17. DUONEB [Concomitant]
  18. PREDNISONE [Concomitant]
  19. NEXIUM [Concomitant]
  20. SPIRIVA [Concomitant]
  21. COUMADIN [Concomitant]
  22. POTASSIUM [Concomitant]
  23. LASIX [Concomitant]
  24. XOPENEX [Concomitant]
  25. ALBUTEROL [Concomitant]
  26. VITAMIN B-12 [Concomitant]
  27. VITAMIN C [Concomitant]
  28. CARDIZEM [Concomitant]
  29. POTASSIUM CHLORIDE [Concomitant]
  30. COUMADIN [Concomitant]
  31. LASIX [Concomitant]
  32. ADVAIR DISKUS 100/50 [Concomitant]
  33. FOSAMAX [Concomitant]
  34. PROTONIX [Concomitant]
  35. SPIRIVA [Concomitant]
  36. CARDIZEM [Concomitant]
  37. COZAAR [Concomitant]

REACTIONS (21)
  - ACUTE MYOCARDIAL INFARCTION [None]
  - ANHEDONIA [None]
  - ANXIETY [None]
  - ASTHMA [None]
  - ATRIAL FIBRILLATION [None]
  - CARDIAC FAILURE CONGESTIVE [None]
  - CARDIO-RESPIRATORY ARREST [None]
  - CARDIOGENIC SHOCK [None]
  - CHEST PAIN [None]
  - CONDITION AGGRAVATED [None]
  - DIZZINESS [None]
  - DYSPNOEA [None]
  - ENDOCARDITIS [None]
  - INJURY [None]
  - MITRAL VALVE INCOMPETENCE [None]
  - OEDEMA PERIPHERAL [None]
  - ORTHOPNOEA [None]
  - PAIN [None]
  - PULMONARY HYPERTENSION [None]
  - QUALITY OF LIFE DECREASED [None]
  - RESPIRATORY FAILURE [None]
